FAERS Safety Report 10175117 (Version 1)
Quarter: 2014Q2

REPORT INFORMATION
  Report Type: Spontaneous
  Country: CO (occurrence: CO)
  Receive Date: 20140515
  Receipt Date: 20140515
  Transmission Date: 20141212
  Serious: Yes (Death, Other)
  Sender: FDA-Public Use
  Company Number: PHHY2014CO058897

PATIENT
  Sex: Female

DRUGS (1)
  1. AFINITOR [Suspect]

REACTIONS (7)
  - Death [Fatal]
  - Hepatotoxicity [Unknown]
  - Transaminases increased [Unknown]
  - Fatigue [Unknown]
  - Hyperglycaemia [Unknown]
  - Polydipsia [Unknown]
  - Constipation [Unknown]
